FAERS Safety Report 22027722 (Version 1)
Quarter: 2023Q1

REPORT INFORMATION
  Report Type: Spontaneous
  Country: US (occurrence: US)
  Receive Date: 20230223
  Receipt Date: 20230223
  Transmission Date: 20230418
  Serious: No
  Sender: FDA-Public Use
  Company Number: US-LUPIN PHARMACEUTICALS INC.-2023-01373

PATIENT

DRUGS (1)
  1. CEPHALEXIN [Suspect]
     Active Substance: CEPHALEXIN
     Indication: Cellulitis
     Dosage: 500 MILLIGRAM, TID (1500 MG, QD)
     Route: 048
     Dates: start: 202209

REACTIONS (1)
  - Psoriasis [Unknown]
